FAERS Safety Report 14286502 (Version 1)
Quarter: 2017Q4

REPORT INFORMATION
  Report Type: Spontaneous
  Country: US (occurrence: US)
  Receive Date: 20171214
  Receipt Date: 20171214
  Transmission Date: 20180321
  Serious: Yes (Other)
  Sender: FDA-Public Use
  Company Number: US-ARBOR PHARMACEUTICALS, LLC-US-2017ARB001048

PATIENT
  Age: 43 Year
  Sex: Male

DRUGS (2)
  1. DEXTROAMPHETAMINE                  /00016601/ [Suspect]
     Active Substance: DEXTROAMPHETAMINE
     Indication: NARCOLEPSY
     Dosage: UNK
  2. AMPHETAMINE SULFATE. [Suspect]
     Active Substance: AMPHETAMINE SULFATE
     Indication: NARCOLEPSY
     Dosage: UNK

REACTIONS (1)
  - Pulmonary hypertension [Unknown]
